FAERS Safety Report 7347232-0 (Version None)
Quarter: 2011Q1

REPORT INFORMATION
  Report Type: 
  Country: None (occurrence: None)
  Receive Date: 20110311
  Receipt Date: 20110228
  Transmission Date: 20110831
  Serious: Yes (Hospitalization, Other)
  Sender: FDA-Public Use
  Company Number: US-ELI_LILLY_AND_COMPANY-US201103002312

PATIENT
  Age: 73 Year
  Sex: Female

DRUGS (9)
  1. OLANZAPINE [Suspect]
     Dosage: 5 MG, DAILY (1/D)
     Route: 048
  2. ACETAMINOPHEN W/ CODEINE [Concomitant]
     Dosage: UNK, OTHER
     Route: 048
  3. ALBUTEROL [Concomitant]
     Dosage: UNK, AS NEEDED
  4. LEVOTHYROXINE [Concomitant]
     Dosage: 100 UG, DAILY (1/D)
     Route: 048
  5. CITALOPRAM [Concomitant]
     Dosage: 20 MG, DAILY (1/D)
     Route: 048
  6. DIVALPROEX SODIUM [Concomitant]
     Dosage: 500 MG, EACH MORNING
     Route: 048
  7. OLANZAPINE [Suspect]
     Indication: BIPOLAR DISORDER
     Dosage: 30 MG, DAILY (1/D)
     Route: 048
  8. DIVALPROEX SODIUM [Concomitant]
     Dosage: 750 MG, EACH EVENING
     Route: 048
  9. FAMOTIDINE [Concomitant]
     Dosage: 10 MG, 3/D
     Route: 048

REACTIONS (8)
  - PARKINSONISM [None]
  - FALL [None]
  - EXTRAPYRAMIDAL DISORDER [None]
  - GENERAL PHYSICAL HEALTH DETERIORATION [None]
  - TOXICITY TO VARIOUS AGENTS [None]
  - DRUG INTERACTION [None]
  - HALLUCINATION [None]
  - MENTAL IMPAIRMENT [None]
